FAERS Safety Report 13393559 (Version 1)
Quarter: 2017Q1

REPORT INFORMATION
  Report Type: Spontaneous
  Country: US (occurrence: US)
  Receive Date: 20170331
  Receipt Date: 20170331
  Transmission Date: 20170429
  Serious: Yes (Hospitalization, Other)
  Sender: FDA-Public Use
  Company Number: US-MYLANLABS-2017M1019750

PATIENT

DRUGS (15)
  1. RANOLAZINE [Interacting]
     Active Substance: RANOLAZINE
     Dosage: 88MG/KG/DAY; DIVIDED OVER 6HOURLY; LATER DECREASED TO 60MG/KG/DAY EVERY 6 HOURS
     Route: 065
  2. MAGNESIUM [Concomitant]
     Active Substance: MAGNESIUM
     Indication: TORSADE DE POINTES
     Route: 065
  3. RANOLAZINE [Interacting]
     Active Substance: RANOLAZINE
     Dosage: 50MG/KG/DAY, DIVIDED OVER EVERY 6 HOURS; LATER, THE DOSE INCREASED TO 60MG/KG/DAY 6HOURLY
     Route: 065
  4. VERAPAMIL [Suspect]
     Active Substance: VERAPAMIL HYDROCHLORIDE
     Indication: PRODUCT USED FOR UNKNOWN INDICATION
     Dosage: 4MG/KG/DAY, DIVIDED OVER EVERY 8 HOURS
     Route: 065
  5. RANOLAZINE [Interacting]
     Active Substance: RANOLAZINE
     Dosage: 12MG/KG/DAY; DIVIDED OVER 6HOURLY; LATER INCREASED TO 50MG/KG/DAY DIVIDED IN EVERY 6 HOURLY
     Route: 065
  6. RANOLAZINE [Interacting]
     Active Substance: RANOLAZINE
     Dosage: 80MG/KG/DAY, DIVIDED OVER EVERY 6 HOURS
     Route: 065
  7. RANOLAZINE [Interacting]
     Active Substance: RANOLAZINE
     Dosage: 60MG/KG/DAY; DIVIDED OVER 6HOURLY; LATER AGAIN INCREASED TO 70MG/KG/DAY EVERY 6 HOURS
     Route: 065
  8. PROPRANOLOL [Concomitant]
     Active Substance: PROPRANOLOL HYDROCHLORIDE
     Indication: TORSADE DE POINTES
     Route: 065
  9. DILTIAZEM. [Concomitant]
     Active Substance: DILTIAZEM
     Dosage: 3MG/KG/DAY DIVIDED OVER 6HOURLY
     Route: 065
  10. RANOLAZINE [Interacting]
     Active Substance: RANOLAZINE
     Indication: TORSADE DE POINTES
     Dosage: 12MG/KG/DAY, DIVIDED OVER EVERY 12 HOURS; LATER, THE DOSE INCREASED TO 12MG/KG/DAY 6HOURLY
     Route: 065
  11. PHENYTOIN. [Concomitant]
     Active Substance: PHENYTOIN
     Indication: ARRHYTHMIA
     Dosage: 12MG/KG/DAY EVERY 8 HOURS
     Route: 065
  12. FLECAINIDE [Concomitant]
     Active Substance: FLECAINIDE
     Indication: TORSADE DE POINTES
     Route: 065
  13. DILTIAZEM. [Concomitant]
     Active Substance: DILTIAZEM
     Indication: PRODUCT USED FOR UNKNOWN INDICATION
     Dosage: 3MG/KG/DAY DIVIDED OVER 8HOURLY
     Route: 065
  14. RANOLAZINE [Interacting]
     Active Substance: RANOLAZINE
     Dosage: 70MG/KG/DAY; DIVIDED OVER 6HOURLY; LATER INCREASED TO 88MG/KG/DAY EVERY 6 HOURS
     Route: 065
  15. ISOPRENALINE [Concomitant]
     Active Substance: ISOPROTERENOL HYDROCHLORIDE
     Indication: TORSADE DE POINTES
     Route: 065

REACTIONS (4)
  - Arrhythmia [Recovered/Resolved]
  - Condition aggravated [Recovered/Resolved]
  - Torsade de pointes [Recovered/Resolved]
  - Drug interaction [Recovered/Resolved]
